FAERS Safety Report 6220517-7 (Version None)
Quarter: 2009Q2

REPORT INFORMATION
  Report Type: 
  Country: None (occurrence: None)
  Receive Date: 20090610
  Receipt Date: 20090529
  Transmission Date: 20091009
  Serious: Yes (Other)
  Sender: FDA-Public Use
  Company Number: IT-AMGEN-US350346

PATIENT
  Age: 48 Year
  Sex: Female

DRUGS (6)
  1. ENBREL [Suspect]
     Indication: POLYARTHRITIS
  2. ENBREL [Suspect]
     Indication: RHEUMATOID ARTHRITIS
  3. PREDNISONE [Concomitant]
     Indication: POLYARTHRITIS
     Dosage: 12.5MG /DIE
  4. PREDNISONE [Concomitant]
     Dosage: 50 MG/DIE
  5. METHOTREXATE [Concomitant]
     Indication: POLYARTHRITIS
  6. METHOTREXATE [Concomitant]
     Indication: DYSAESTHESIA

REACTIONS (2)
  - AXONAL NEUROPATHY [None]
  - DRUG INEFFECTIVE [None]
